FAERS Safety Report 9132384 (Version 1)
Quarter: 2013Q1

REPORT INFORMATION
  Report Type: Spontaneous
  Country: CN (occurrence: CN)
  Receive Date: 20130107
  Receipt Date: 20130107
  Transmission Date: 20140127
  Serious: Yes (Other)
  Sender: FDA-Public Use
  Company Number: CN-GLAXOSMITHKLINE-B0848582A

PATIENT
  Age: 30 Year
  Sex: Male
  Weight: 65 kg

DRUGS (1)
  1. SEROXAT [Suspect]
     Indication: ANXIETY
     Dosage: 10MG PER DAY
     Route: 048
     Dates: start: 20111115

REACTIONS (6)
  - Pneumoperitoneum [Recovering/Resolving]
  - Weight increased [Recovering/Resolving]
  - Alanine aminotransferase increased [Recovered/Resolved]
  - Vision blurred [Recovering/Resolving]
  - Hiccups [Recovering/Resolving]
  - Somnolence [Recovering/Resolving]
